FAERS Safety Report 8853816 (Version 2)
Quarter: 2013Q1

REPORT INFORMATION
  Report Type: Spontaneous
  Country: US (occurrence: US)
  Receive Date: 20121022
  Receipt Date: 20130306
  Transmission Date: 20140127
  Serious: Yes (Life-Threatening, Hospitalization)
  Sender: FDA-Public Use
  Company Number: US-BAYER-2012-107794

PATIENT
  Age: 22 Year
  Sex: Female
  Weight: 56.69 kg

DRUGS (6)
  1. YASMIN [Suspect]
     Indication: ACNE
     Dosage: UNK
     Dates: start: 200209, end: 20050421
  2. YASMIN [Suspect]
     Indication: ACNE
     Dosage: UNK
     Dates: start: 200210, end: 200504
  3. ANTIBIOTICS [Concomitant]
     Indication: ACNE
  4. ANTIBIOTICS [Concomitant]
     Indication: MALAISE
  5. NSAID^S [Concomitant]
  6. ADVIL [Concomitant]

REACTIONS (10)
  - Pulmonary embolism [Recovered/Resolved]
  - Emotional distress [None]
  - Pain in extremity [None]
  - Mental disorder [None]
  - Pain [None]
  - Lung disorder [Recovered/Resolved]
  - Injury [Recovered/Resolved]
  - General physical health deterioration [Recovered/Resolved]
  - Anxiety [None]
  - Chest pain [Recovered/Resolved]
